FAERS Safety Report 9766227 (Version 2)
Quarter: 2014Q1

REPORT INFORMATION
  Report Type: Spontaneous
  Country: US (occurrence: US)
  Receive Date: 20131217
  Receipt Date: 20140318
  Transmission Date: 20141002
  Serious: No
  Sender: FDA-Public Use
  Company Number: US-PFIZER INC-2013357528

PATIENT
  Age: 72 Year
  Sex: Female
  Weight: 63.49 kg

DRUGS (3)
  1. LYRICA [Suspect]
     Indication: NEURALGIA
     Dosage: 300 MG, 2X/DAY
  2. LYRICA [Suspect]
     Indication: BACK PAIN
  3. HYDROCODONE [Concomitant]
     Indication: PAIN
     Dosage: 10 MG, 6X/DAY

REACTIONS (3)
  - Pre-existing condition improved [Unknown]
  - Therapeutic response unexpected [Unknown]
  - Local swelling [Not Recovered/Not Resolved]
